FAERS Safety Report 17298055 (Version 1)
Quarter: 2020Q3

REPORT INFORMATION
  Report Type: Report from Study
  Country: BR (occurrence: BR)
  Receive Date: 20200122
  Receipt Date: 20200122
  Transmission Date: 20201104
  Serious: Yes (Other)
  Sender: FDA-Public Use
  Company Number: BR-ROCHE-2315263

PATIENT
  Age: 48 Year
  Sex: Male
  Weight: 66 kg

DRUGS (21)
  1. ETOPOSIDE. [Concomitant]
     Active Substance: ETOPOSIDE
     Indication: DIFFUSE LARGE B-CELL LYMPHOMA
     Route: 065
     Dates: start: 20181117
  2. RITUXIMAB. [Suspect]
     Active Substance: RITUXIMAB
     Indication: NON-HODGKIN^S LYMPHOMA
  3. CISPLATIN. [Concomitant]
     Active Substance: CISPLATIN
     Route: 065
  4. RITUXIMAB. [Suspect]
     Active Substance: RITUXIMAB
     Indication: B-CELL LYMPHOMA
     Dosage: 5 CYCLES?MABTHERA 500 MG: N7314309; MABTHERA 100 MG: N7273B23.
     Route: 065
     Dates: start: 20190525
  5. RIBOMUSTIN [Suspect]
     Active Substance: BENDAMUSTINE HYDROCHLORIDE
     Indication: B-CELL LYMPHOMA
     Route: 065
     Dates: start: 20190525
  6. GEMCITABINE. [Concomitant]
     Active Substance: GEMCITABINE
     Route: 065
     Dates: start: 20181029
  7. BENDAMUSTINE [Suspect]
     Active Substance: BENDAMUSTINE
     Indication: NON-HODGKIN^S LYMPHOMA
  8. CISPLATIN. [Concomitant]
     Active Substance: CISPLATIN
     Indication: DIFFUSE LARGE B-CELL LYMPHOMA
     Dosage: 5 CYCLES
     Route: 065
     Dates: start: 20180629, end: 20181004
  9. DEXAMETHASONE. [Concomitant]
     Active Substance: DEXAMETHASONE
     Route: 065
     Dates: start: 20181029
  10. CISPLATIN. [Concomitant]
     Active Substance: CISPLATIN
     Route: 065
     Dates: start: 20181029
  11. POLATUZUMAB VEDOTIN. [Suspect]
     Active Substance: POLATUZUMAB VEDOTIN
     Indication: B-CELL LYMPHOMA
     Dosage: POLATUZUMAB VEDOTIN 140 MG: 11590713
     Route: 065
     Dates: start: 20190525
  12. BLEOMYCIN [Concomitant]
     Active Substance: BLEOMYCIN SULFATE
     Indication: DIFFUSE LARGE B-CELL LYMPHOMA
  13. CYTARABINE. [Concomitant]
     Active Substance: CYTARABINE
     Indication: DIFFUSE LARGE B-CELL LYMPHOMA
     Dosage: 5 CYCLES
     Route: 065
     Dates: start: 20180629, end: 20181004
  14. POLATUZUMAB VEDOTIN. [Suspect]
     Active Substance: POLATUZUMAB VEDOTIN
     Indication: NON-HODGKIN^S LYMPHOMA
  15. BENDAMUSTINE [Suspect]
     Active Substance: BENDAMUSTINE
     Indication: B-CELL LYMPHOMA
     Route: 065
  16. GEMCITABINE. [Concomitant]
     Active Substance: GEMCITABINE
     Indication: DIFFUSE LARGE B-CELL LYMPHOMA
     Route: 065
  17. GEMCITABINE. [Concomitant]
     Active Substance: GEMCITABINE
     Dosage: 2 CYCLES
     Route: 065
     Dates: start: 20181031
  18. IFOSFAMIDE. [Concomitant]
     Active Substance: IFOSFAMIDE
     Indication: DIFFUSE LARGE B-CELL LYMPHOMA
     Route: 065
     Dates: start: 20181117
  19. DEXAMETHASONE. [Concomitant]
     Active Substance: DEXAMETHASONE
     Indication: DIFFUSE LARGE B-CELL LYMPHOMA
     Dosage: 5 CYCLES
     Route: 065
     Dates: start: 20180629, end: 20181004
  20. DEXAMETHASONE. [Concomitant]
     Active Substance: DEXAMETHASONE
     Dosage: 2 CYCLES
     Route: 065
     Dates: start: 20181031
  21. CISPLATIN. [Concomitant]
     Active Substance: CISPLATIN
     Dosage: 2 CYCLES
     Route: 065
     Dates: start: 20181031

REACTIONS (16)
  - Pyrexia [Recovered/Resolved]
  - Vomiting [Recovered/Resolved]
  - Thrombocytopenia [Recovered/Resolved]
  - Mucosal inflammation [Recovered/Resolved]
  - Platelet count decreased [Unknown]
  - Dehydration [Unknown]
  - Weight decreased [Recovered/Resolved]
  - Fatigue [Recovered/Resolved]
  - Blood creatinine increased [Recovered/Resolved]
  - Acute kidney injury [Unknown]
  - Neutropenia [Recovered/Resolved]
  - Papilloedema [Not Recovered/Not Resolved]
  - Optic neuritis [Not Recovered/Not Resolved]
  - Tachycardia [Recovered/Resolved]
  - Optic ischaemic neuropathy [Not Recovered/Not Resolved]
  - Febrile neutropenia [Recovered/Resolved]

NARRATIVE: CASE EVENT DATE: 20190816
